FAERS Safety Report 5082100-9 (Version None)
Quarter: 2006Q3

REPORT INFORMATION
  Report Type: 
  Country: None (occurrence: None)
  Receive Date: 20060815
  Receipt Date: 20060815
  Transmission Date: 20061208
  Serious: Yes (Hospitalization, Other)
  Sender: FDA-Public Use
  Company Number: None

PATIENT
  Age: 25 Year
  Sex: Male

DRUGS (1)
  1. ATORVASTATIN CALCIUM [Suspect]
     Indication: RHABDOMYOLYSIS
     Dosage: PO
     Route: 048
     Dates: end: 20060505

REACTIONS (6)
  - BLOOD CREATINE PHOSPHOKINASE INCREASED [None]
  - BLOOD URINE PRESENT [None]
  - LIVER FUNCTION TEST ABNORMAL [None]
  - MUSCLE DISORDER [None]
  - MYALGIA [None]
  - NAUSEA [None]
